FAERS Safety Report 5783084-8 (Version None)
Quarter: 2008Q2

REPORT INFORMATION
  Report Type: 
  Country: None (occurrence: None)
  Receive Date: 20080619
  Receipt Date: 20080619
  Transmission Date: 20081010
  Serious: Yes (Death, Life-Threatening, Hospitalization, Disabling, Other)
  Sender: FDA-Public Use
  Company Number: None

PATIENT
  Age: 82 Year
  Sex: Female
  Weight: 76.6579 kg

DRUGS (1)
  1. DIGITEK .125 MG UNKNOWN [Suspect]
     Indication: CARDIAC FAILURE CONGESTIVE
     Dosage: 1 A DAY
     Dates: start: 19990101, end: 20080412

REACTIONS (2)
  - BLOOD PRESSURE DECREASED [None]
  - PHARMACEUTICAL PRODUCT COMPLAINT [None]
